FAERS Safety Report 14571459 (Version 2)
Quarter: 2018Q2

REPORT INFORMATION
  Report Type: Report from Study
  Country: US (occurrence: US)
  Receive Date: 20180226
  Receipt Date: 20180404
  Transmission Date: 20180711
  Serious: Yes (Other)
  Sender: FDA-Public Use
  Company Number: PHEH2018US006768

PATIENT
  Age: 82 Year
  Sex: Male
  Weight: 66.12 kg

DRUGS (2)
  1. MEKINIST [Suspect]
     Active Substance: TRAMETINIB DIMETHYL SULFOXIDE
     Indication: NON-SMALL CELL LUNG CANCER
     Dosage: 2 MG, UNK
     Route: 048
     Dates: start: 201712, end: 20180321
  2. TAFINLAR [Suspect]
     Active Substance: DABRAFENIB MESYLATE
     Indication: NON-SMALL CELL LUNG CANCER
     Dosage: 75 MG, UNK
     Route: 048
     Dates: start: 201712, end: 20180321

REACTIONS (8)
  - Headache [Unknown]
  - Monocyte count increased [Unknown]
  - Macular degeneration [Unknown]
  - Haematocrit decreased [Unknown]
  - Malaise [Unknown]
  - Haemoglobin decreased [Unknown]
  - Blood glucose increased [Unknown]
  - Red blood cell count decreased [Unknown]

NARRATIVE: CASE EVENT DATE: 20180312
